FAERS Safety Report 7658577-9 (Version None)
Quarter: 2011Q3

REPORT INFORMATION
  Report Type: 
  Country: None (occurrence: None)
  Receive Date: 20110804
  Receipt Date: 20110804
  Transmission Date: 20111222
  Serious: No
  Sender: FDA-Public Use
  Company Number: None

PATIENT
  Sex: Male
  Weight: 108.8633 kg

DRUGS (1)
  1. MIRTAZAPINE [Suspect]
     Indication: DEPRESSION
     Dosage: 30 MG 1 1/2 DAILY SWALLOWED
     Route: 048
     Dates: start: 20110101, end: 20110701

REACTIONS (2)
  - MYALGIA [None]
  - ARTHRALGIA [None]
